FAERS Safety Report 16186385 (Version 4)
Quarter: 2019Q2

REPORT INFORMATION
  Report Type: Spontaneous
  Country: FR (occurrence: FR)
  Receive Date: 20190411
  Receipt Date: 20190529
  Transmission Date: 20190711
  Serious: Yes (Hospitalization, Other)
  Sender: FDA-Public Use
  Company Number: FR-PFIZER INC-2019152871

PATIENT
  Age: 65 Year
  Sex: Male
  Weight: 79 kg

DRUGS (18)
  1. RIVOTRIL [Suspect]
     Active Substance: CLONAZEPAM
     Indication: PAIN
     Dosage: 15 GTT DROPS, QD
     Route: 048
     Dates: start: 20181009, end: 20181016
  2. SUFENTANIL [Suspect]
     Active Substance: SUFENTANIL
     Indication: ANAESTHESIA
     Dosage: 90 MICROGRAM, QD
     Route: 042
     Dates: start: 20181005, end: 20181005
  3. MORPHINE [Suspect]
     Active Substance: MORPHINE
     Indication: PROCEDURAL PAIN
     Dosage: 169 MILLIGRAMS, UNK
     Route: 042
     Dates: start: 20181005, end: 20181007
  4. PROPOFOL. [Suspect]
     Active Substance: PROPOFOL
     Indication: ANAESTHESIA
     Dosage: 150 MILLIGRAM, QD
     Route: 042
     Dates: start: 20181005, end: 20181005
  5. ISOFUNDINE [Suspect]
     Active Substance: CALCIUM CHLORIDE\MAGNESIUM CHLORIDE\MALIC ACID\POTASSIUM CHLORIDE\SODIUM ACETATE\SODIUM CHLORIDE
     Indication: BLOOD VOLUME EXPANSION
     Dosage: 1 LITER, QD
     Route: 042
     Dates: start: 20181005, end: 20181005
  6. CEFAZOLINE [CEFAZOLIN] [Suspect]
     Active Substance: CEFAZOLIN
     Indication: INFECTION PROPHYLAXIS
     Dosage: 2 GRAM, QD
     Route: 042
     Dates: start: 20181005, end: 20181005
  7. DROPERIDOL. [Suspect]
     Active Substance: DROPERIDOL
     Indication: NAUSEA
     Dosage: 14 MILLIGRAMS, UNK
     Route: 042
     Dates: start: 20181005, end: 20181007
  8. DEXAMETHASONE. [Suspect]
     Active Substance: DEXAMETHASONE
     Indication: ANAESTHESIA
     Dosage: 8 MILLIGRAM, QD
     Route: 042
     Dates: start: 20181005, end: 20181005
  9. SPASFON LYOC [Concomitant]
     Active Substance: PHLOROGLUCINOL
     Indication: PAIN
     Dosage: 480 MILLIGRAM, QD
     Route: 048
     Dates: start: 20181005, end: 201811
  10. LOVENOX [Concomitant]
     Active Substance: ENOXAPARIN SODIUM
     Indication: THROMBOSIS PROPHYLAXIS
     Dosage: 1 DF, 1X/DAY
     Route: 058
     Dates: start: 20181005, end: 201811
  11. PARACETAMOL [Concomitant]
     Active Substance: ACETAMINOPHEN
     Indication: PAIN
     Dosage: 1 GRAM, Q6HR
     Route: 048
     Dates: start: 20181005, end: 201811
  12. KETAMINE [Suspect]
     Active Substance: KETAMINE
     Indication: ANAESTHESIA
     Dosage: 25 MILLIGRAM, QD
     Route: 042
     Dates: start: 20181005, end: 20181005
  13. EXACYL [Suspect]
     Active Substance: TRANEXAMIC ACID
     Indication: ANAESTHESIA
     Dosage: 1 GRAM, QD
     Route: 042
     Dates: start: 20181005, end: 20181005
  14. TOPALGIC [TRAMADOL HYDROCHLORIDE] [Suspect]
     Active Substance: TRAMADOL HYDROCHLORIDE
     Indication: PAIN
     Dosage: UNK
     Route: 048
     Dates: start: 20181005, end: 20181012
  15. ZOLPIDEM [Concomitant]
     Active Substance: ZOLPIDEM\ZOLPIDEM TARTRATE
     Indication: INSOMNIA
     Dosage: 5 MILLIGRAM, QD
     Route: 048
     Dates: start: 20181009, end: 20181017
  16. TRACRIUM [Suspect]
     Active Substance: ATRACURIUM BESYLATE
     Indication: ANAESTHESIA
     Dosage: 75 MILLIGRAM, QD
     Route: 042
     Dates: start: 20181005, end: 20181005
  17. OXYBUTYNINE [OXYBUTYNIN HYDROCHLORIDE] [Concomitant]
     Dosage: 5 MILLIGRAM, QD
     Route: 048
     Dates: start: 20181009, end: 201811
  18. LANSOPRAZOLE. [Suspect]
     Active Substance: LANSOPRAZOLE
     Indication: GASTRITIS
     Dosage: 15 MILLIGRAM, QD
     Route: 048
     Dates: start: 20181005, end: 20181012

REACTIONS (1)
  - Pancreatitis acute [Recovered/Resolved]

NARRATIVE: CASE EVENT DATE: 20181010
